FAERS Safety Report 23570943 (Version 1)
Quarter: 2024Q1

REPORT INFORMATION
  Report Type: Spontaneous
  Country: US (occurrence: US)
  Receive Date: 20240227
  Receipt Date: 20240227
  Transmission Date: 20240409
  Serious: No
  Sender: FDA-Public Use
  Company Number: US-PFIZER INC-202101655236

PATIENT
  Age: 75 Year
  Sex: Female

DRUGS (1)
  1. IBRANCE [Suspect]
     Active Substance: PALBOCICLIB
     Dosage: 100 MG, CYCLIC (TAKES THE MEDICATION FOR 28 DAYS AND THEN IS OFF OF IT FOR 1 WEEK)
     Dates: start: 20161122

REACTIONS (2)
  - Neoplasm progression [Unknown]
  - Off label use [Unknown]
